FAERS Safety Report 5628067-3 (Version None)
Quarter: 2008Q1

REPORT INFORMATION
  Report Type: 
  Country: None (occurrence: None)
  Receive Date: 20080215
  Receipt Date: 20080208
  Transmission Date: 20080703
  Serious: Yes (Other)
  Sender: FDA-Public Use
  Company Number: US-PURDUE-USA_2008_0031499

PATIENT
  Sex: Male

DRUGS (2)
  1. DILAUDID - HP INJECTION [Suspect]
     Indication: PAIN
     Dosage: UNK, Q2H
     Route: 042
  2. PERCOCET [Suspect]
     Indication: PAIN

REACTIONS (3)
  - INADEQUATE ANALGESIA [None]
  - OVERDOSE [None]
  - PUPILLARY DISORDER [None]
